FAERS Safety Report 7093937-9 (Version None)
Quarter: 2010Q4

REPORT INFORMATION
  Report Type: 
  Country: None (occurrence: None)
  Receive Date: 20101101
  Receipt Date: 20101025
  Transmission Date: 20110411
  Serious: Yes (Death, Hospitalization)
  Sender: FDA-Public Use
  Company Number: WAES 1010USA01091

PATIENT
  Sex: Male

DRUGS (4)
  1. ISENTRESS [Suspect]
     Dosage: PO
     Route: 048
     Dates: start: 20100727, end: 20101008
  2. LOPINAVIR AND RITONAVIR [Suspect]
     Dates: start: 20100727, end: 20101008
  3. SEPTRA [Suspect]
     Dates: start: 20100602
  4. DICLOFENAC SODIUM [Suspect]
     Dates: start: 20100921

REACTIONS (8)
  - DEHYDRATION [None]
  - DIARRHOEA [None]
  - HEPATITIS [None]
  - MYALGIA [None]
  - ORAL CANDIDIASIS [None]
  - PALLOR [None]
  - PNEUMONIA KLEBSIELLA [None]
  - POLLAKIURIA [None]
